FAERS Safety Report 7683617-0 (Version None)
Quarter: 2011Q3

REPORT INFORMATION
  Report Type: 
  Country: None (occurrence: None)
  Receive Date: 20110815
  Receipt Date: 20110810
  Transmission Date: 20111222
  Serious: Yes (Life-Threatening)
  Sender: FDA-Public Use
  Company Number: JP-ASTRAZENECA-2011SE42125

PATIENT
  Age: 65 Year
  Sex: Female
  Weight: 52 kg

DRUGS (4)
  1. CLONAZEPAM [Concomitant]
     Route: 048
     Dates: start: 19870101, end: 20110707
  2. DEPAKENE [Concomitant]
     Dosage: NUMBER OF DOSES: 1,1,2; HALF DOSE FROM 07-JUL-2011 TO 11-JUL-2011
     Route: 048
     Dates: start: 19870101
  3. HYDANTOL F [Concomitant]
     Dosage: NUMBER OF DOSES: 1,1,2; HALF DOSE FROM 07-JUL-2011 TO 11-JUL-2011
     Route: 048
     Dates: start: 19870101
  4. IRESSA [Suspect]
     Indication: LUNG ADENOCARCINOMA
     Route: 048
     Dates: start: 20110531, end: 20110707

REACTIONS (1)
  - HEPATIC FUNCTION ABNORMAL [None]
